FAERS Safety Report 7998740-0 (Version None)
Quarter: 2011Q4

REPORT INFORMATION
  Report Type: 
  Country: None (occurrence: None)
  Receive Date: 20111221
  Receipt Date: 20111212
  Transmission Date: 20120403
  Serious: Yes (Hospitalization, Other)
  Sender: FDA-Public Use
  Company Number: US-ABBOTT-11P-163-0850240-00

PATIENT
  Sex: Female

DRUGS (2)
  1. LUPRON DEPOT [Suspect]
     Indication: UTERINE LEIOMYOMA
     Dates: start: 20110803, end: 20110803
  2. ZOCOR [Concomitant]
     Indication: BLOOD CHOLESTEROL INCREASED

REACTIONS (8)
  - ABDOMINAL ABSCESS [None]
  - ASCITES [None]
  - INFECTIOUS PERITONITIS [None]
  - ABDOMINAL PAIN [None]
  - DEGENERATION OF UTERINE LEIOMYOMA [None]
  - SEPTIC SHOCK [None]
  - UTERINE PERFORATION [None]
  - TUMOUR RUPTURE [None]
